FAERS Safety Report 7020044-3 (Version None)
Quarter: 2010Q3

REPORT INFORMATION
  Report Type: 
  Country: None (occurrence: None)
  Receive Date: 20100929
  Receipt Date: 20100915
  Transmission Date: 20110219
  Serious: Yes (Other)
  Sender: FDA-Public Use
  Company Number: PT-RANBAXY-2010RR-38286

PATIENT
  Sex: Female

DRUGS (1)
  1. CIPROFLOXACINA RANBAXY 500MG COMPRIMIDOS REVESTIDOS [Suspect]
     Indication: URINARY TRACT INFECTION
     Dosage: 500 MG, UNK
     Route: 048
     Dates: end: 20090727

REACTIONS (6)
  - DYSPNOEA [None]
  - EYE PRURITUS [None]
  - FACE OEDEMA [None]
  - OCULAR HYPERAEMIA [None]
  - OROPHARYNGEAL DISCOMFORT [None]
  - SNEEZING [None]
